FAERS Safety Report 12625851 (Version 2)
Quarter: 2016Q3

REPORT INFORMATION
  Report Type: Spontaneous
  Country: US (occurrence: US)
  Receive Date: 20160805
  Receipt Date: 20160808
  Transmission Date: 20161109
  Serious: No
  Sender: FDA-Public Use
  Company Number: US-WARNER CHILCOTT, LLC-1055915

PATIENT
  Age: 61 Year
  Sex: Female
  Weight: 56.82 kg

DRUGS (2)
  1. DELZICOL [Suspect]
     Active Substance: MESALAMINE
     Indication: CROHN^S DISEASE
     Route: 048
     Dates: start: 20160613, end: 20160614
  2. PREDNISONE. [Concomitant]
     Active Substance: PREDNISONE
     Dates: start: 20160613

REACTIONS (7)
  - Constipation [Recovered/Resolved]
  - Activities of daily living impaired [Recovered/Resolved]
  - Dizziness [Recovered/Resolved]
  - Nausea [Recovered/Resolved]
  - Abdominal pain upper [Recovered/Resolved]
  - Malaise [Recovered/Resolved]
  - Rash pruritic [Recovering/Resolving]

NARRATIVE: CASE EVENT DATE: 20160614
